FAERS Safety Report 18208871 (Version 1)
Quarter: 2020Q3

REPORT INFORMATION
  Report Type: Report from Study
  Country: BR (occurrence: BR)
  Receive Date: 20200828
  Receipt Date: 20200828
  Transmission Date: 20201103
  Serious: Yes (Hospitalization)
  Sender: FDA-Public Use
  Company Number: NVSC2020BR235378

PATIENT
  Sex: Female

DRUGS (2)
  1. DIOVAN [Suspect]
     Active Substance: VALSARTAN
     Indication: BLOOD PRESSURE ABNORMAL
     Dosage: 2 DF, BID (USING MORE THAN 5 YEARS) (ONE IN THE MORNING AND ONE IN NIGHT)
     Route: 065
  2. DIOVAN HCT [Suspect]
     Active Substance: HYDROCHLOROTHIAZIDE\VALSARTAN
     Indication: BLOOD PRESSURE ABNORMAL
     Dosage: 1 DF, QD (STARTED A LONG TIME AGO)
     Route: 065

REACTIONS (4)
  - Blood potassium decreased [Unknown]
  - Blood sodium decreased [Unknown]
  - Blood pressure abnormal [Unknown]
  - Malaise [Unknown]
